FAERS Safety Report 9400212 (Version 3)
Quarter: 2014Q1

REPORT INFORMATION
  Report Type: Report from Study
  Country: US (occurrence: US)
  Receive Date: 20130715
  Receipt Date: 20140210
  Transmission Date: 20141002
  Serious: Yes (Death)
  Sender: FDA-Public Use
  Company Number: US-JNJFOC-20130201591

PATIENT
  Age: 70 Year
  Sex: Female
  Weight: 64.86 kg

DRUGS (2)
  1. INFLIXIMAB, RECOMBINANT [Suspect]
     Indication: PSORIASIS
     Route: 042
     Dates: start: 201204
  2. CORTICOSTEROIDS NOS [Concomitant]

REACTIONS (1)
  - Peripheral nerve sheath tumour malignant [Fatal]
